FAERS Safety Report 23937664 (Version 7)
Quarter: 2024Q4

REPORT INFORMATION
  Report Type: Spontaneous
  Country: US (occurrence: US)
  Receive Date: 20240604
  Receipt Date: 20241115
  Transmission Date: 20250115
  Serious: Yes (Life-Threatening, Other)
  Sender: BLUEPRINT MEDICINES
  Company Number: US-Blueprint Medicines Corporation-3760

PATIENT
  Age: 56 Year
  Sex: Female
  Weight: 68.7 kg

DRUGS (17)
  1. AYVAKIT [Suspect]
     Active Substance: AVAPRITINIB
     Indication: Systemic mastocytosis
     Route: 065
     Dates: start: 20240507
  2. AYVAKIT [Suspect]
     Active Substance: AVAPRITINIB
     Indication: Advanced systemic mastocytosis
     Route: 065
     Dates: start: 20240217
  3. AYVAKIT [Suspect]
     Active Substance: AVAPRITINIB
     Route: 065
     Dates: start: 20220217
  4. AYVAKIT [Suspect]
     Active Substance: AVAPRITINIB
     Route: 065
     Dates: start: 20220302, end: 20220411
  5. AYVAKIT [Suspect]
     Active Substance: AVAPRITINIB
     Route: 065
     Dates: start: 20240320
  6. VIAGRA [Concomitant]
     Active Substance: SILDENAFIL CITRATE
     Indication: Cardiac disorder
     Route: 065
  7. ABILIFY [Concomitant]
     Active Substance: ARIPIPRAZOLE
     Indication: Product used for unknown indication
     Route: 065
  8. BUSPIRONE [Concomitant]
     Active Substance: BUSPIRONE HYDROCHLORIDE
     Indication: Product used for unknown indication
     Route: 065
  9. CELEBREX [Concomitant]
     Active Substance: CELECOXIB
     Indication: Product used for unknown indication
     Route: 065
  10. GABAPENTIN [Concomitant]
     Active Substance: GABAPENTIN
     Indication: Product used for unknown indication
     Route: 065
  11. LITHIUM [Concomitant]
     Active Substance: LITHIUM
     Indication: Product used for unknown indication
     Route: 065
  12. STRATTERA [Concomitant]
     Active Substance: ATOMOXETINE HYDROCHLORIDE
     Indication: Product used for unknown indication
     Route: 065
  13. TRAZODONE [Concomitant]
     Active Substance: TRAZODONE HYDROCHLORIDE
     Indication: Product used for unknown indication
     Route: 065
  14. Omega 3 FA [Concomitant]
     Indication: Product used for unknown indication
     Route: 065
  15. HYDROCHLOROTHIAZIDE [Concomitant]
     Active Substance: HYDROCHLOROTHIAZIDE
     Indication: Product used for unknown indication
     Route: 065
  16. OMEPRAZOLE [Concomitant]
     Active Substance: OMEPRAZOLE
     Indication: Product used for unknown indication
     Route: 065
  17. CYPROHEPTADINE [Concomitant]
     Active Substance: CYPROHEPTADINE
     Indication: Product used for unknown indication
     Route: 065

REACTIONS (18)
  - Loss of consciousness [Unknown]
  - Pulmonary hypertension [Recovered/Resolved]
  - Right ventricular failure [Recovered/Resolved]
  - Thyroid mass [Not Recovered/Not Resolved]
  - Dehydration [Unknown]
  - Dyspnoea [Unknown]
  - Eye swelling [Unknown]
  - Hair texture abnormal [Unknown]
  - Alopecia [Unknown]
  - Memory impairment [Not Recovered/Not Resolved]
  - Abdominal discomfort [Recovered/Resolved]
  - Hypertension [Unknown]
  - Cortisol increased [Unknown]
  - Cortisol decreased [Unknown]
  - Brain fog [Not Recovered/Not Resolved]
  - Muscular weakness [Unknown]
  - Gait disturbance [Unknown]
  - Product dose omission in error [Unknown]

NARRATIVE: CASE EVENT DATE: 20240601
